FAERS Safety Report 8442572 (Version 2)
Quarter: 2012Q4

REPORT INFORMATION
  Report Type: Report from Study
  Country: US (occurrence: US)
  Receive Date: 20120306
  Receipt Date: 20121023
  Transmission Date: 20130627
  Serious: Yes (Hospitalization, Other)
  Sender: FDA-Public Use
  Company Number: US-ASTELLAS-2012US002385

PATIENT
  Age: 71 Year
  Sex: Male
  Weight: 69 kg

DRUGS (18)
  1. ERLOTINIB TABLET [Suspect]
     Indication: PANCREATIC CARCINOMA
     Dosage: 150 mg, UID/QD
     Route: 048
     Dates: start: 20120123
  2. GEMCITABINE HYDROCHLORIDE [Suspect]
     Indication: PANCREATIC CARCINOMA
     Dosage: 1000 mg/m2, Day 1 and Day 8 of 21, Cyclic
     Route: 042
     Dates: start: 20120123
  3. NORCO [Concomitant]
     Indication: PRODUCT USED FOR UNKNOWN INDICATION
     Dosage: 325/10 1 in 1, prn
     Route: 065
  4. DOCUSATE SODIUM [Concomitant]
     Indication: PRODUCT USED FOR UNKNOWN INDICATION
     Dosage: 200 mg, Unknown/D
     Route: 065
  5. REGLAN [Concomitant]
     Indication: PRODUCT USED FOR UNKNOWN INDICATION
     Dosage: 5 mg, qid (ac/hs)
  6. MORPHINE SULFATE [Concomitant]
     Indication: PRODUCT USED FOR UNKNOWN INDICATION
     Dosage: 30 mg, 1 in 12 D, Other
  7. ZOFRAN [Concomitant]
     Indication: PRODUCT USED FOR UNKNOWN INDICATION
     Dosage: 4 mg, bid
     Route: 065
  8. CREON [Concomitant]
     Indication: PRODUCT USED FOR UNKNOWN INDICATION
     Dosage: 120000 U, tid
     Route: 065
  9. PROTONIX [Concomitant]
     Indication: PRODUCT USED FOR UNKNOWN INDICATION
     Dosage: 40 mg, UID/QD
     Route: 065
  10. SENNA [Concomitant]
     Indication: PRODUCT USED FOR UNKNOWN INDICATION
     Dosage: 30 mg, QHS
     Route: 065
  11. AMLODIPINE [Concomitant]
     Indication: PRODUCT USED FOR UNKNOWN INDICATION
     Dosage: 10 mg, UID/QD
     Route: 065
  12. BACITRACIN [Concomitant]
     Indication: PRODUCT USED FOR UNKNOWN INDICATION
     Dosage: UNK
     Route: 061
  13. CHLORTHALIDONE [Concomitant]
     Indication: PRODUCT USED FOR UNKNOWN INDICATION
     Dosage: 25 mg, Unknown/D
     Route: 065
  14. HYDROMORPHONE HCL [Concomitant]
     Indication: PRODUCT USED FOR UNKNOWN INDICATION
     Dosage: 8 mg, prn
     Route: 065
  15. MEGESTROL [Concomitant]
     Indication: PRODUCT USED FOR UNKNOWN INDICATION
     Dosage: 10 mg, bid
     Route: 065
  16. METHADONE [Concomitant]
     Indication: PRODUCT USED FOR UNKNOWN INDICATION
     Dosage: 10 mg, bid
     Route: 065
  17. METOPROLOL [Concomitant]
     Indication: PRODUCT USED FOR UNKNOWN INDICATION
     Dosage: 50 mg, bid
     Route: 065
  18. POTASSIUM CHLORIDE [Concomitant]
     Indication: PRODUCT USED FOR UNKNOWN INDICATION
     Dosage: 15 ml, Unknown/D
     Route: 065

REACTIONS (12)
  - Incorrect dose administered [Unknown]
  - Bile duct obstruction [Unknown]
  - Metabolic alkalosis [Unknown]
  - Hyperkalaemia [Unknown]
  - Hallucination [Unknown]
  - Myoclonus [Unknown]
  - Enterobacter pneumonia [Unknown]
  - Sepsis [Unknown]
  - Renal failure acute [Unknown]
  - Dehydration [Unknown]
  - Nausea [Unknown]
  - Tremor [Unknown]
